FAERS Safety Report 12638776 (Version 2)
Quarter: 2016Q3

REPORT INFORMATION
  Report Type: Report from Study
  Country: GB (occurrence: GB)
  Receive Date: 20160809
  Receipt Date: 20160822
  Transmission Date: 20161109
  Serious: Yes (Hospitalization, Other)
  Sender: FDA-Public Use
  Company Number: PHFR2016GB003170

PATIENT
  Age: 57 Year
  Sex: Male

DRUGS (1)
  1. ENTRESTO [Suspect]
     Active Substance: SACUBITRIL\VALSARTAN
     Indication: CARDIAC FAILURE CHRONIC
     Dosage: 200 MG, BID
     Route: 065
     Dates: start: 201601, end: 201603

REACTIONS (4)
  - Gastric ulcer haemorrhage [Unknown]
  - Chest pain [Unknown]
  - Gastric disorder [Unknown]
  - Gastric cancer [Unknown]

NARRATIVE: CASE EVENT DATE: 201603
